FAERS Safety Report 8440232-9 (Version None)
Quarter: 2012Q2

REPORT INFORMATION
  Report Type: 
  Country: None (occurrence: None)
  Receive Date: 20120615
  Receipt Date: 20120606
  Transmission Date: 20120825
  Serious: Yes (Other)
  Sender: FDA-Public Use
  Company Number: US-ABBOTT-12P-163-0941464-00

PATIENT
  Sex: Male
  Weight: 90.8 kg

DRUGS (7)
  1. NIASPAN [Suspect]
     Indication: LOW DENSITY LIPOPROTEIN INCREASED
     Dates: start: 20030101, end: 20100101
  2. NIASPAN [Suspect]
     Indication: BLOOD TRIGLYCERIDES INCREASED
  3. NIASPAN [Suspect]
     Indication: HIGH DENSITY LIPOPROTEIN DECREASED
  4. ASPIRIN [Concomitant]
     Indication: PRODUCT USED FOR UNKNOWN INDICATION
  5. ANDROGEL [Concomitant]
     Indication: PRODUCT USED FOR UNKNOWN INDICATION
  6. TOPROL-XL [Concomitant]
     Indication: PRODUCT USED FOR UNKNOWN INDICATION
  7. VITAMIN [Concomitant]
     Indication: VITAMIN SUPPLEMENTATION

REACTIONS (4)
  - FLUSHING [None]
  - SKIN BURNING SENSATION [None]
  - CORONARY ARTERIAL STENT INSERTION [None]
  - PARAESTHESIA [None]
